FAERS Safety Report 4316128-0 (Version None)
Quarter: 2004Q1

REPORT INFORMATION
  Report Type: 
  Country: None (occurrence: None)
  Receive Date: 20040310
  Receipt Date: 20040224
  Transmission Date: 20041129
  Serious: Yes (Life-Threatening)
  Sender: FDA-Public Use
  Company Number: 02100-JPN-04-0042

PATIENT
  Age: 61 Year
  Sex: Male

DRUGS (4)
  1. CILOSTAZOL [Suspect]
     Dosage: 100 MG ORAL
     Route: 048
     Dates: start: 20040211, end: 20040223
  2. NILVADIPINE [Concomitant]
  3. FAMOTIDINE [Concomitant]
  4. SODIUM BICARBONATE [Concomitant]

REACTIONS (1)
  - CEREBRAL HAEMORRHAGE [None]
